FAERS Safety Report 6745006-2 (Version None)
Quarter: 2010Q2

REPORT INFORMATION
  Report Type: 
  Country: None (occurrence: None)
  Receive Date: 20100527
  Receipt Date: 20100526
  Transmission Date: 20101027
  Serious: Yes (Hospitalization)
  Sender: FDA-Public Use
  Company Number: DE-ROCHE-694019

PATIENT
  Sex: Female
  Weight: 70 kg

DRUGS (1)
  1. PEGINTERFERON ALFA-2A [Suspect]
     Route: 058
     Dates: start: 20090308

REACTIONS (1)
  - FEMORAL ARTERY EMBOLISM [None]
